FAERS Safety Report 8915374 (Version 1)
Quarter: 2012Q4

REPORT INFORMATION
  Report Type: 
  Country: CA (occurrence: CA)
  Receive Date: 20121116
  Receipt Date: 20121116
  Transmission Date: 20130627
  Serious: Yes (Hospitalization)
  Sender: FDA-Public Use
  Company Number: CA-ASTRAZENECA-2012SE84930

PATIENT
  Age: 74 Year
  Sex: Female
  Weight: 85 kg

DRUGS (17)
  1. MERREM [Suspect]
     Dosage: 1000 MG, TWO EVERY ONE DAY
     Route: 042
  2. VANCOMYCIN [Suspect]
     Dosage: 1000 MG, ONE EVERY TWO DAYS
     Route: 042
  3. AMARYL [Concomitant]
     Route: 048
  4. AMLODIPINE [Concomitant]
     Route: 048
  5. BENADRYL [Concomitant]
  6. CALCIUM AND VITAMIN D [Concomitant]
  7. CLOTRIMAZOLE [Concomitant]
  8. CRESTOR [Concomitant]
     Route: 048
  9. ENTROPHEN [Concomitant]
     Route: 048
  10. FERROUS SULPHATE [Concomitant]
     Route: 048
  11. FORTAMINES [Concomitant]
     Route: 048
  12. LASIX [Concomitant]
     Route: 048
  13. LISINOPRIL [Concomitant]
     Route: 065
  14. LORAZEPAM [Concomitant]
  15. METFORMIN [Concomitant]
     Route: 048
  16. THIAMINE [Concomitant]
     Route: 065
  17. VITAMIN C [Concomitant]

REACTIONS (5)
  - Confusional state [Recovered/Resolved]
  - General physical health deterioration [Recovered/Resolved]
  - Pyrexia [Recovered/Resolved]
  - Tubulointerstitial nephritis [Recovered/Resolved]
  - Rash [Recovered/Resolved]
